FAERS Safety Report 4541389-2 (Version None)
Quarter: 2004Q4

REPORT INFORMATION
  Report Type: 
  Country: None (occurrence: None)
  Receive Date: 20041229
  Receipt Date: 20041223
  Transmission Date: 20050328
  Serious: Yes (Disabling)
  Sender: FDA-Public Use
  Company Number: NL-MERCK-0412NLD00014

PATIENT
  Age: 89 Year
  Sex: Female

DRUGS (4)
  1. VIOXX [Suspect]
     Route: 048
     Dates: start: 20010701, end: 20040501
  2. ASPIRIN CALCIUM [Concomitant]
     Route: 065
  3. PANTOPRAZOLE SODIUM [Concomitant]
     Route: 048
     Dates: start: 20010701
  4. LISINOPRIL [Concomitant]
     Route: 048
     Dates: start: 20030501

REACTIONS (2)
  - CEREBROVASCULAR ACCIDENT [None]
  - GASTRIC HAEMORRHAGE [None]
